FAERS Safety Report 6697631-5 (Version None)
Quarter: 2010Q2

REPORT INFORMATION
  Report Type: 
  Country: None (occurrence: None)
  Receive Date: 20100423
  Receipt Date: 20100412
  Transmission Date: 20101027
  Serious: Yes (Other)
  Sender: FDA-Public Use
  Company Number: 231837K09USA

PATIENT
  Age: 57 Year
  Sex: Female

DRUGS (5)
  1. REBIF [Suspect]
     Indication: MULTIPLE SCLEROSIS
     Dosage: 44 MCG, 3 IN 1 WK, SUBCUTANEOUS
     Route: 058
     Dates: start: 20081003
  2. ANTIDEPRESSANTS (ANTIDEPRESSANTS) [Concomitant]
  3. ASPIRIN [Concomitant]
  4. UNSPECIFIED MEDICATIONS (ALL OTHER THERAPEUTIC PRODUCTS) [Concomitant]
  5. LEVOTHYROXINE SODIUM [Concomitant]

REACTIONS (5)
  - BLADDER PROLAPSE [None]
  - BURNING SENSATION [None]
  - CONSTIPATION [None]
  - ECONOMIC PROBLEM [None]
  - PAIN IN EXTREMITY [None]
